FAERS Safety Report 5146357-8 (Version None)
Quarter: 2006Q4

REPORT INFORMATION
  Report Type: 
  Country: None (occurrence: None)
  Receive Date: 20061102
  Receipt Date: 20061020
  Transmission Date: 20070319
  Serious: Yes (Hospitalization)
  Sender: FDA-Public Use
  Company Number: 2006069286

PATIENT
  Age: 60 Year
  Sex: Male

DRUGS (2)
  1. BEXTRA [Suspect]
     Dosage: 10 MG
     Dates: start: 20030201
  2. VIOXX [Suspect]
     Dosage: 25 MG
     Dates: start: 19991101, end: 20030216

REACTIONS (8)
  - ABDOMINAL PAIN [None]
  - BLOOD PRESSURE SYSTOLIC INCREASED [None]
  - CEREBRAL INFARCTION [None]
  - CEREBRAL ISCHAEMIA [None]
  - CEREBROVASCULAR ACCIDENT [None]
  - CHILLS [None]
  - MYOCARDIAL INFARCTION [None]
  - PYREXIA [None]
